FAERS Safety Report 7248328-4 (Version None)
Quarter: 2011Q1

REPORT INFORMATION
  Report Type: 
  Country: None (occurrence: None)
  Receive Date: 20110127
  Receipt Date: 20110125
  Transmission Date: 20110831
  Serious: Yes (Other)
  Sender: FDA-Public Use
  Company Number: FR-ABBOTT-11P-056-0700626-00

PATIENT
  Sex: Female

DRUGS (2)
  1. HUMIRA [Suspect]
     Indication: RHEUMATOID ARTHRITIS
     Route: 058
     Dates: start: 20101101
  2. NOVATREX [Suspect]
     Indication: RHEUMATOID ARTHRITIS
     Dates: end: 20110101

REACTIONS (1)
  - CYTOLYTIC HEPATITIS [None]
